FAERS Safety Report 17044101 (Version 1)
Quarter: 2019Q4

REPORT INFORMATION
  Report Type: Spontaneous
  Country: CN (occurrence: CN)
  Receive Date: 20191118
  Receipt Date: 20191118
  Transmission Date: 20200122
  Serious: Yes (Hospitalization, Other)
  Sender: FDA-Public Use
  Company Number: CN-BAXTER-2019BAX022943

PATIENT
  Age: 41 Year
  Sex: Female
  Weight: 60 kg

DRUGS (8)
  1. DOXORUBICIN HYDROCHLORIDE. [Suspect]
     Active Substance: DOXORUBICIN HYDROCHLORIDE
     Dosage: DOSE RE-INTRODUCED. DOXORUBICIN HYDROCHLORIDE + STERILE WATER
     Route: 042
  2. 0.9% SODIUM CHLORIDE INJECTION [Suspect]
     Active Substance: SODIUM CHLORIDE
     Dosage: DOSE RE-INTRODUCED. ENDOXAN + SODIUM CHLORIDE
     Route: 041
  3. STERILE WATER [Suspect]
     Active Substance: WATER
     Indication: MEDICATION DILUTION
     Dosage: DOXORUBICIN HYDROCHLORIDE 96 MG + STERILE WATER 500 ML
     Route: 042
     Dates: start: 20191012, end: 20191012
  4. STERILE WATER [Suspect]
     Active Substance: WATER
     Dosage: DOSE RE-INTRODUCED. DOXORUBICIN HYDROCHLORIDE + STERILE WATER
     Route: 042
  5. DOXORUBICIN HYDROCHLORIDE. [Suspect]
     Active Substance: DOXORUBICIN HYDROCHLORIDE
     Indication: BREAST CANCER
     Dosage: DOXORUBICIN HYDROCHLORIDE 96 MG + STERILE WATER 500 ML
     Route: 042
     Dates: start: 20191012, end: 20191012
  6. ENDOXAN [Suspect]
     Active Substance: CYCLOPHOSPHAMIDE
     Dosage: DOSE RE-INTRODUCED. ENDOXAN + SODIUM CHLORIDE
     Route: 041
  7. ENDOXAN [Suspect]
     Active Substance: CYCLOPHOSPHAMIDE
     Indication: BREAST CANCER
     Dosage: ENDOXAN 966 MG + SODIUM CHLORIDE 100 ML
     Route: 041
     Dates: start: 20191012, end: 20191012
  8. 0.9% SODIUM CHLORIDE INJECTION [Suspect]
     Active Substance: SODIUM CHLORIDE
     Indication: MEDICATION DILUTION
     Dosage: ENDOXAN 966 MG + SODIUM CHLORIDE 100 ML
     Route: 041
     Dates: start: 20191012, end: 20191012

REACTIONS (2)
  - Leukopenia [Recovered/Resolved]
  - Agranulocytosis [Recovered/Resolved]

NARRATIVE: CASE EVENT DATE: 20191024
